FAERS Safety Report 5717481-3 (Version None)
Quarter: 2008Q2

REPORT INFORMATION
  Report Type: 
  Country: None (occurrence: None)
  Receive Date: 20080425
  Receipt Date: 20080417
  Transmission Date: 20081010
  Serious: Yes (Death)
  Sender: FDA-Public Use
  Company Number: IT-BAYER-200816283GPV

PATIENT
  Age: 12 Year
  Sex: Male

DRUGS (14)
  1. FLUDARA [Suspect]
     Indication: ALLOGENIC BONE MARROW TRANSPLANTATION THERAPY
     Dosage: UNIT DOSE: 50 MG
     Route: 042
     Dates: start: 20071030, end: 20071104
  2. THYMOGLOBULIN [Suspect]
     Indication: ALLOGENIC BONE MARROW TRANSPLANTATION THERAPY
     Dosage: UNIT DOSE: 100 MG
     Route: 042
     Dates: start: 20071102, end: 20071104
  3. TREOSULFAN INJECTION [Suspect]
     Indication: DRUG USE FOR UNKNOWN INDICATION
     Route: 042
     Dates: start: 20071031, end: 20071102
  4. FLUCONAZOLE [Concomitant]
     Route: 042
     Dates: start: 20071029, end: 20071111
  5. VALPROATE SODIUM [Concomitant]
     Route: 042
     Dates: start: 20071029, end: 20071118
  6. ACYCLOVIR [Concomitant]
     Route: 042
     Dates: start: 20071031, end: 20071119
  7. FUROSEMIDE [Concomitant]
     Route: 042
     Dates: start: 20071104, end: 20071128
  8. CYCLOSPORINE [Concomitant]
     Route: 042
     Dates: start: 20071030, end: 20071118
  9. AMIKACIN SULPHATE [Concomitant]
     Route: 042
     Dates: start: 20071110, end: 20071118
  10. CEFTAZIDIME PENTAHYDRATE [Concomitant]
     Route: 042
     Dates: start: 20071110, end: 20071118
  11. VANCOMYCIN [Concomitant]
     Route: 042
     Dates: start: 20071111, end: 20071116
  12. METHYLPREDNISOLONE [Concomitant]
     Route: 042
     Dates: start: 20071111, end: 20071112
  13. DEFIBROTIDE [Concomitant]
     Route: 042
     Dates: start: 20071118, end: 20071127
  14. AMBISOME [Concomitant]
     Route: 042
     Dates: start: 20071111, end: 20071119

REACTIONS (1)
  - CAPILLARY LEAK SYNDROME [None]
